FAERS Safety Report 19405290 (Version 1)
Quarter: 2021Q2

REPORT INFORMATION
  Report Type: Spontaneous
  Country: SE (occurrence: SE)
  Receive Date: 20210611
  Receipt Date: 20210611
  Transmission Date: 20210717
  Serious: Yes (Other)
  Sender: FDA-Public Use
  Company Number: SE-TEVA-2021-SE-1904800

PATIENT
  Age: 69 Year
  Sex: Male

DRUGS (7)
  1. ROSUVASTATIN. [Suspect]
     Active Substance: ROSUVASTATIN
     Indication: LIPIDS
     Dosage: 5MILLIGRAM
     Route: 048
     Dates: start: 20210316, end: 20210416
  2. CANDESARTAN. [Concomitant]
     Active Substance: CANDESARTAN
     Dosage: IRON IN VERSION 0: 16 MG IRON IN VERSION 0: 8 MG
  3. TROMBYL 75 MG TABLETT [Concomitant]
     Active Substance: ASPIRIN
     Route: 048
  4. EZETIMIBE. [Concomitant]
     Active Substance: EZETIMIBE
     Route: 048
  5. ROSUVASTATIN. [Suspect]
     Active Substance: ROSUVASTATIN
     Indication: CARDIOVASCULAR DISORDER
     Dosage: 40MG
     Route: 048
     Dates: start: 202011
  6. PANTOPRAZOLE [Concomitant]
     Active Substance: PANTOPRAZOLE
     Route: 048
  7. CLOPIDOGREL [Concomitant]
     Active Substance: CLOPIDOGREL BISULFATE
     Dosage: 75MILLIGRAM
     Route: 048

REACTIONS (2)
  - Back pain [Unknown]
  - Pain [Unknown]

NARRATIVE: CASE EVENT DATE: 202102
